FAERS Safety Report 20000804 (Version 1)
Quarter: 2021Q4

REPORT INFORMATION
  Report Type: Spontaneous
  Country: US (occurrence: US)
  Receive Date: 20211026
  Receipt Date: 20211026
  Transmission Date: 20220303
  Serious: Yes (Other)
  Sender: FDA-Public Use
  Company Number: None

PATIENT
  Age: 50 Year
  Sex: Female
  Weight: 84.6 kg

DRUGS (1)
  1. EMGALITY [Suspect]
     Active Substance: GALCANEZUMAB-GNLM
     Indication: Headache
     Dosage: ?          QUANTITY:1 INJECTION(S);OTHER FREQUENCY:MONTHLY;
     Route: 058

REACTIONS (9)
  - Constipation [None]
  - Abdominal distension [None]
  - Urinary tract infection [None]
  - Nausea [None]
  - Muscle spasms [None]
  - Anxiety [None]
  - Hypoaesthesia [None]
  - Depression [None]
  - Pain [None]

NARRATIVE: CASE EVENT DATE: 20210928
